FAERS Safety Report 18406289 (Version 8)
Quarter: 2022Q1

REPORT INFORMATION
  Report Type: Report from Study
  Country: GB (occurrence: GB)
  Receive Date: 20201020
  Receipt Date: 20220207
  Transmission Date: 20220423
  Serious: Yes (Hospitalization)
  Sender: FDA-Public Use
  Company Number: GB-FEDR-MF-002-5041002-20200720-0018SG

PATIENT
  Age: 76 Year
  Sex: Female
  Weight: 64 kg

DRUGS (10)
  1. FEDRATINIB [Suspect]
     Active Substance: FEDRATINIB
     Indication: Myelofibrosis
     Dosage: 400 MG X 1 X 1 DAYS
     Route: 048
     Dates: start: 20200304, end: 20200717
  2. ALLOPURINOL [Concomitant]
     Active Substance: ALLOPURINOL
     Indication: Prophylaxis
     Dosage: 300 MG/DAY X CONTINUOUS
     Route: 048
  3. ATROVENT INHALER [Concomitant]
     Indication: Asthma
     Dosage: 1-2 INHALATION X 2 X 1 DAYS
     Route: 055
     Dates: start: 1943
  4. CEPHALEXIN [Concomitant]
     Active Substance: CEPHALEXIN
     Indication: Prophylaxis
     Dosage: 500 MG X 1 X 1 DAYS
     Route: 048
     Dates: start: 2019
  5. DIGOXCIN [Concomitant]
     Indication: Atrial fibrillation
     Dosage: 62.5 UG/DAY X CONTINUOUS
     Route: 048
  6. DILTIAZEM HYDROCHLORIDE [Concomitant]
     Active Substance: DILTIAZEM HYDROCHLORIDE
     Indication: Hypertension
     Dosage: 360 MG/DAY X CONTINUOUS
     Route: 048
  7. VENTOLIN [Concomitant]
     Active Substance: ALBUTEROL SULFATE
     Indication: Asthma
     Dosage: 2 INHALATION X PRN
     Route: 055
     Dates: start: 1943
  8. VITAMIN D NOS [Concomitant]
     Active Substance: VITAMIN D NOS
     Indication: Prophylaxis
     Dosage: 1 TABLET X CONTINUOUS
     Route: 048
  9. CARBOHYDRATES\FATTY ACIDS\MINERALS\PROTEIN\VITAMINS [Concomitant]
     Active Substance: CARBOHYDRATES\FATTY ACIDS\MINERALS\PROTEIN\VITAMINS
     Indication: Decreased appetite
     Dosage: 1 BOTTLE X PRN
     Route: 048
     Dates: start: 20200304
  10. ZOPICLONE [Concomitant]
     Active Substance: ZOPICLONE
     Indication: Insomnia
     Dosage: 7.5 MG X PRN
     Route: 048
     Dates: start: 20200302

REACTIONS (3)
  - Dyspnoea [Recovered/Resolved]
  - Vomiting [Recovered/Resolved]
  - Anaemia [Recovered/Resolved]

NARRATIVE: CASE EVENT DATE: 20200710
